FAERS Safety Report 15279643 (Version 1)
Quarter: 2018Q3

REPORT INFORMATION
  Report Type: Spontaneous
  Country: US (occurrence: US)
  Receive Date: 20180815
  Receipt Date: 20180815
  Transmission Date: 20181010
  Serious: No
  Sender: FDA-Public Use
  Company Number: US-PFIZER INC-2018327305

PATIENT
  Age: 69 Year
  Sex: Female
  Weight: 59 kg

DRUGS (1)
  1. PREMPRO [Suspect]
     Active Substance: ESTROGENS, CONJUGATED\MEDROXYPROGESTERONE ACETATE
     Indication: HOT FLUSH
     Dosage: [ESTROGENS CONJUGATED 0.3MG]/[MEDROXYPROGESTERONE ACETATE 1.5MG], DAILY
     Route: 048
     Dates: start: 201701

REACTIONS (2)
  - Depressed mood [Unknown]
  - Insomnia [Unknown]
